FAERS Safety Report 4271866-3 (Version None)
Quarter: 2004Q1

REPORT INFORMATION
  Report Type: 
  Country: None (occurrence: None)
  Receive Date: 20040112
  Receipt Date: 20040107
  Transmission Date: 20041129
  Serious: Yes (Hospitalization)
  Sender: FDA-Public Use
  Company Number: 200410033GDS

PATIENT
  Age: 47 Year
  Sex: Male
  Weight: 60 kg

DRUGS (3)
  1. ASPIRIN [Suspect]
     Indication: ACUTE MYOCARDIAL INFARCTION
     Dosage: 300 MG, TOTAL DAILY
  2. T-PA (TISSUE PLASMINOGEN ACTIVATOR, RECOMBINATIVE) [Suspect]
     Indication: ACUTE MYOCARDIAL INFARCTION
  3. ENOXAPARIN (ENOXAPARIN SODIUM) [Suspect]
     Indication: ACUTE MYOCARDIAL INFARCTION
     Dosage: 47 MG, TOTAL DAILY

REACTIONS (20)
  - ABDOMINAL PAIN UPPER [None]
  - BLOOD PRESSURE DIASTOLIC DECREASED [None]
  - CARDIAC ABLATION [None]
  - CARDIAC INDEX DECREASED [None]
  - CARDIAC TAMPONADE [None]
  - CARDIOVASCULAR DISORDER [None]
  - CENTRAL VENOUS PRESSURE INCREASED [None]
  - CHEST PAIN [None]
  - CORONARY ARTERY REOCCLUSION [None]
  - COUGH [None]
  - DYSPNOEA [None]
  - ELECTROCARDIOGRAM ST SEGMENT ELEVATION [None]
  - HYPOTENSION [None]
  - LEFT VENTRICULAR FAILURE [None]
  - PERICARDIAL EFFUSION [None]
  - PERICARDIAL HAEMORRHAGE [None]
  - PERICARDITIS [None]
  - PULMONARY ARTERIAL PRESSURE INCREASED [None]
  - PULMONARY ARTERIAL WEDGE PRESSURE INCREASED [None]
  - SHOCK [None]
